FAERS Safety Report 5033328-5 (Version None)
Quarter: 2006Q2

REPORT INFORMATION
  Report Type: 
  Country: None (occurrence: None)
  Receive Date: 20060515
  Receipt Date: 20060224
  Transmission Date: 20061013
  Serious: No
  Sender: FDA-Public Use
  Company Number: S06-USA-00697-01

PATIENT
  Age: 83 Year
  Sex: Female

DRUGS (11)
  1. NAMENDA [Suspect]
     Indication: AMNESIA
     Dosage: 5 MG BID PO
     Route: 048
     Dates: start: 20060219
  2. NAMENDA [Suspect]
     Indication: AMNESIA
     Dosage: 5 MG QD PO
     Route: 048
     Dates: start: 20060212, end: 20060218
  3. LEXAPRO [Suspect]
     Indication: DEPRESSION
  4. XANAX [Concomitant]
  5. ELAVIL [Concomitant]
  6. VISTARIL (HYDROXYZINE EMBONATE) [Concomitant]
  7. PREMARIN [Concomitant]
  8. SYNTHROID [Concomitant]
  9. PREVACID [Concomitant]
  10. ATENOLOL [Concomitant]
  11. REGLAN [Concomitant]

REACTIONS (1)
  - NAUSEA [None]
